FAERS Safety Report 16238186 (Version 22)
Quarter: 2023Q4

REPORT INFORMATION
  Report Type: Spontaneous
  Country: US (occurrence: US)
  Receive Date: 20190425
  Receipt Date: 20231204
  Transmission Date: 20240109
  Serious: Yes (Hospitalization, Other)
  Sender: FDA-Public Use
  Company Number: US-PFIZER INC-2019095146

PATIENT
  Age: 66 Year
  Sex: Female
  Weight: 58 kg

DRUGS (24)
  1. XELJANZ XR [Suspect]
     Active Substance: TOFACITINIB CITRATE
     Indication: Rheumatoid arthritis
     Dosage: 11 MG, DAILY
     Route: 048
     Dates: start: 20180131
  2. XELJANZ XR [Suspect]
     Active Substance: TOFACITINIB CITRATE
     Indication: Arthritis
     Dosage: 11 MG, 1X/DAY
     Route: 048
     Dates: start: 20180301, end: 2018
  3. XELJANZ XR [Suspect]
     Active Substance: TOFACITINIB CITRATE
     Indication: Rheumatoid arthritis
     Dosage: 11 MG, DAILY
     Route: 048
     Dates: start: 2018
  4. XELJANZ XR [Suspect]
     Active Substance: TOFACITINIB CITRATE
     Dosage: UNK, 1X/DAY
     Route: 048
  5. ADCIRCA [Concomitant]
     Active Substance: TADALAFIL
     Dosage: 20 MG
  6. CALTRATE WITH VITAMIN D [Concomitant]
     Active Substance: CALCIUM CARBONATE\CHOLECALCIFEROL
     Dosage: 1 TABLET BID
  7. LETAIRIS [Concomitant]
     Active Substance: AMBRISENTAN
     Dosage: 10 MG, 1X/DAY
     Route: 048
  8. TYLENOL WITH CODEINE [Concomitant]
     Active Substance: ACETAMINOPHEN\CODEINE PHOSPHATE
     Indication: Pain
     Dosage: AS NEEDED (300-30 TABLET TAKE ONE TABLET BY MOUTH EVERY 6 HOURS AS NEEDED)
     Route: 048
  9. MELOXICAM [Concomitant]
     Active Substance: MELOXICAM
     Dosage: 15 MG, 1X/DAY
     Route: 048
  10. OMEPRAZOLE [Concomitant]
     Active Substance: OMEPRAZOLE
     Dosage: 40 MG, 1X/DAY
     Route: 048
  11. ORENITRAM [Concomitant]
     Active Substance: TREPROSTINIL
     Indication: Pulmonary hypertension
     Dosage: 0.125 MG, UNK
  12. ORENITRAM [Concomitant]
     Active Substance: TREPROSTINIL
     Indication: Dyspnoea
     Dosage: 4.75 MG (TWO 1MG TABLETS; ONE 0.25 TABLET; ONE 2.5 MG TABLET)
     Route: 048
  13. ORENITRAM [Concomitant]
     Active Substance: TREPROSTINIL
     Dosage: 5 MG, 3X/DAY (4.75MG THREE TIMES DAILY, NOTES: INCREASE BY 0.125 MG PER MO. THE GOAL IS 5 MG TID
     Route: 048
  14. PREDNISONE [Concomitant]
     Active Substance: PREDNISONE
     Dosage: 10 MG
  15. PROLIA [Concomitant]
     Active Substance: DENOSUMAB
     Indication: Senile osteoporosis
     Dosage: 60 MG/ML SOLUTION EVERY 6 MONTHS
     Route: 058
  16. RASUVO [Concomitant]
     Active Substance: METHOTREXATE SODIUM
     Dosage: (10MG/0.2ML AUTO INJCT)
  17. PAR [Concomitant]
     Dosage: 20 MG, 2X/DAY
     Route: 048
  18. ACETAMINOPHEN\CODEINE PHOSPHATE [Concomitant]
     Active Substance: ACETAMINOPHEN\CODEINE PHOSPHATE
     Indication: Rheumatoid arthritis
     Dosage: UNK, AS NEEDED
     Route: 048
  19. AMBRISENTAN [Concomitant]
     Active Substance: AMBRISENTAN
     Dosage: 10 MG, 1X/DAY
     Route: 048
  20. ACETAMINOPHEN\HYDROCODONE [Concomitant]
     Active Substance: ACETAMINOPHEN\HYDROCODONE
     Indication: Finger deformity
     Dosage: UNK, AS NEEDED (1 TABLET AS NEEDED)
     Route: 048
  21. MIRTAZAPINE [Concomitant]
     Active Substance: MIRTAZAPINE
     Dosage: 15 MG, 1X/DAY (AT BEDTIME)
     Route: 048
  22. PROPRANOLOL HYDROCHLORIDE [Concomitant]
     Active Substance: PROPRANOLOL HYDROCHLORIDE
     Dosage: 10 MG, 1X/DAY
     Route: 048
  23. TADALAFIL PAH AL [Concomitant]
     Indication: Pulmonary hypertension
     Dosage: 20 MG, 2X/DAY
     Route: 048
  24. TADALAFIL PAH AL [Concomitant]
     Indication: Dyspnoea

REACTIONS (11)
  - COVID-19 [Unknown]
  - Illness [Unknown]
  - Rheumatoid arthritis [Unknown]
  - Grip strength decreased [Unknown]
  - Pain in extremity [Unknown]
  - Musculoskeletal disorder [Unknown]
  - Arthritis [Not Recovered/Not Resolved]
  - Loss of personal independence in daily activities [Unknown]
  - Impaired driving ability [Unknown]
  - Dysgraphia [Unknown]
  - Diarrhoea [Recovered/Resolved]

NARRATIVE: CASE EVENT DATE: 20221201
